FAERS Safety Report 7583001-4 (Version None)
Quarter: 2011Q2

REPORT INFORMATION
  Report Type: 
  Country: None (occurrence: None)
  Receive Date: 20110627
  Receipt Date: 20110627
  Transmission Date: 20111010
  Serious: Yes (Life-Threatening, Hospitalization, Other)
  Sender: FDA-Public Use
  Company Number: None

PATIENT
  Age: 24 Year
  Sex: Male
  Weight: 76.6579 kg

DRUGS (1)
  1. ALDARA [Suspect]
     Indication: PAPILLOMA VIRAL INFECTION
     Dosage: 1  5 DAYS TOP
     Route: 061
     Dates: start: 20110609, end: 20110613

REACTIONS (4)
  - ASTHENIA [None]
  - AUTOIMMUNE DISORDER [None]
  - RASH GENERALISED [None]
  - DRUG INEFFECTIVE [None]
